FAERS Safety Report 10229398 (Version 2)
Quarter: 2014Q3

REPORT INFORMATION
  Report Type: Spontaneous
  Country: US (occurrence: US)
  Receive Date: 20140611
  Receipt Date: 20140721
  Transmission Date: 20150326
  Serious: Yes (Other)
  Sender: FDA-Public Use
  Company Number: US-AMGEN-USASP2014042312

PATIENT
  Age: 66 Year
  Sex: Female

DRUGS (3)
  1. LEVOXYL [Concomitant]
     Active Substance: LEVOTHYROXINE SODIUM
  2. SIMVASTIN [Concomitant]
     Active Substance: SIMVASTATIN
  3. PROLIA [Suspect]
     Active Substance: DENOSUMAB
     Indication: OSTEOPOROSIS POSTMENOPAUSAL
     Dosage: 60 MG, Q6MO
     Route: 065
     Dates: start: 2011

REACTIONS (4)
  - Muscle spasms [Unknown]
  - Thrombosis [Unknown]
  - Gastrooesophageal reflux disease [Unknown]
  - Joint destruction [Unknown]

NARRATIVE: CASE EVENT DATE: 20140224
